FAERS Safety Report 5668162-6 (Version None)
Quarter: 2008Q1

REPORT INFORMATION
  Report Type: 
  Country: None (occurrence: None)
  Receive Date: 20080313
  Receipt Date: 20080228
  Transmission Date: 20080703
  Serious: Yes (Other)
  Sender: FDA-Public Use
  Company Number: B0511282A

PATIENT
  Sex: Female

DRUGS (4)
  1. ABACAVIR SULFATE [Suspect]
     Indication: HIV INFECTION
  2. LAMIVUDINE [Concomitant]
  3. ZIDOVUDINE [Concomitant]
  4. CO-TRIMOXAZOLE [Concomitant]

REACTIONS (1)
  - MITOCHONDRIAL CYTOPATHY [None]
